FAERS Safety Report 4656711-6 (Version None)
Quarter: 2005Q2

REPORT INFORMATION
  Report Type: 
  Country: None (occurrence: None)
  Receive Date: 20050509
  Receipt Date: 20050502
  Transmission Date: 20051028
  Serious: Yes (Other)
  Sender: FDA-Public Use
  Company Number: PHNU2005DE01834

PATIENT
  Age: 74 Year
  Sex: Female
  Weight: 88 kg

DRUGS (3)
  1. HERCEPTIN [Concomitant]
     Dates: start: 20041201
  2. XELODA [Suspect]
     Dates: start: 20041101, end: 20050201
  3. ZOMETA [Suspect]
     Indication: METASTASES TO BONE
     Dosage: 4 MG MONTHLY
     Dates: start: 20030501, end: 20050201

REACTIONS (2)
  - ASEPTIC NECROSIS BONE [None]
  - PAIN [None]
